FAERS Safety Report 4906899-4 (Version None)
Quarter: 2006Q1

REPORT INFORMATION
  Report Type: 
  Country: None (occurrence: None)
  Receive Date: 20060207
  Receipt Date: 20060126
  Transmission Date: 20060701
  Serious: Yes (Death, Hospitalization, Other)
  Sender: FDA-Public Use
  Company Number: 2006AL000250

PATIENT
  Age: 79 Year
  Sex: Female

DRUGS (5)
  1. TRAMADOL HCL [Suspect]
     Indication: SCIATICA
  2. KADIAN [Suspect]
  3. AMITRIPTYLINE HCL [Concomitant]
  4. ROFECOXIB [Concomitant]
  5. COPROXAMOL [Concomitant]

REACTIONS (14)
  - BLOOD CREATINE PHOSPHOKINASE INCREASED [None]
  - BLOOD POTASSIUM DECREASED [None]
  - COMA [None]
  - CONVULSION [None]
  - DELIRIUM [None]
  - FALL [None]
  - GENERAL PHYSICAL HEALTH DETERIORATION [None]
  - METABOLIC ACIDOSIS [None]
  - RESPIRATORY DISORDER [None]
  - SEPSIS [None]
  - SEROTONIN SYNDROME [None]
  - SHOCK [None]
  - TACHYCARDIA [None]
  - THERAPY NON-RESPONDER [None]
